FAERS Safety Report 21957950 (Version 4)
Quarter: 2024Q1

REPORT INFORMATION
  Report Type: Report from Study
  Country: US (occurrence: US)
  Receive Date: 20230206
  Receipt Date: 20240122
  Transmission Date: 20240409
  Serious: Yes (Other)
  Sender: FDA-Public Use
  Company Number: US-JAZZ-2023-US-002389

PATIENT
  Sex: Male

DRUGS (27)
  1. XYWAV [Suspect]
     Active Substance: CALCIUM OXYBATE\MAGNESIUM OXYBATE\POTASSIUM OXYBATE\SODIUM OXYBATE
     Indication: Narcolepsy
     Dosage: UNK
  2. XYWAV [Suspect]
     Active Substance: CALCIUM OXYBATE\MAGNESIUM OXYBATE\POTASSIUM OXYBATE\SODIUM OXYBATE
     Indication: Cataplexy
     Dosage: 9 MILLILITER, BID
     Route: 048
  3. SIMVASTATIN [Suspect]
     Active Substance: SIMVASTATIN
     Indication: Product used for unknown indication
     Dosage: UNK
  4. NUVIGIL [Concomitant]
     Active Substance: ARMODAFINIL
     Indication: Product used for unknown indication
     Dosage: UNK
     Dates: start: 20151121
  5. RITALIN [Concomitant]
     Active Substance: METHYLPHENIDATE HYDROCHLORIDE
     Indication: Product used for unknown indication
     Dosage: UNK
     Dates: start: 20151121
  6. RAMIPRIL [Concomitant]
     Active Substance: RAMIPRIL
     Indication: Product used for unknown indication
     Dosage: UNK
     Dates: start: 20151121
  7. FOCALIN [Concomitant]
     Active Substance: DEXMETHYLPHENIDATE HYDROCHLORIDE
     Indication: Product used for unknown indication
     Dosage: UNK
     Dates: start: 20151121
  8. ASPIRIN [Concomitant]
     Active Substance: ASPIRIN
     Indication: Product used for unknown indication
     Dosage: UNK
     Dates: start: 20151121
  9. FLONASE ALLERGY RELIEF [Concomitant]
     Active Substance: FLUTICASONE PROPIONATE
     Indication: Product used for unknown indication
     Dosage: UNK
     Dates: start: 20151121
  10. CRESTOR [Concomitant]
     Active Substance: ROSUVASTATIN CALCIUM
     Indication: Product used for unknown indication
     Dosage: UNK
     Dates: start: 20210130
  11. PROBIOTICS NOS [Concomitant]
     Active Substance: PROBIOTICS NOS
     Indication: Product used for unknown indication
     Dosage: UNK
     Dates: start: 20130130
  12. OCUVITE ADULT 50+ [ASCORBIC ACID;CUPRIC OXIDE;OMEGA-3 FATTY ACIDS;TOCO [Concomitant]
     Indication: Product used for unknown indication
     Dosage: UNK
     Dates: start: 20210130
  13. CIALIS [Concomitant]
     Active Substance: TADALAFIL
     Dosage: UNK
  14. VITAMIN E [Concomitant]
     Active Substance: .ALPHA.-TOCOPHEROL
  15. CAL MAG [CALCIUM;COLECALCIFEROL;MAGNESIUM;PHOSPHORUS] [Concomitant]
     Dosage: UNK
  16. VITAMIN D3 [Concomitant]
     Active Substance: CHOLECALCIFEROL
     Dosage: UNK
  17. ASCORBIC ACID [Concomitant]
     Active Substance: ASCORBIC ACID
     Dosage: UNK
  18. VITAMINS [Concomitant]
     Active Substance: VITAMINS
     Dosage: UNK
  19. LISINOPRIL [Concomitant]
     Active Substance: LISINOPRIL
     Dosage: UNK
  20. TAMSULOSIN [Concomitant]
     Active Substance: TAMSULOSIN
     Dosage: UNK
  21. EZETIMIBE [Concomitant]
     Active Substance: EZETIMIBE
     Dosage: UNK, QD
  22. ROSUVASTATIN CALCIUM [Concomitant]
     Active Substance: ROSUVASTATIN CALCIUM
     Dosage: UNK
  23. DEXMETHYLPHENIDATE HYDROCHLORIDE [Concomitant]
     Active Substance: DEXMETHYLPHENIDATE HYDROCHLORIDE
     Indication: Product used for unknown indication
     Dosage: UNK, BID
     Route: 048
  24. ARMODAFINIL [Concomitant]
     Active Substance: ARMODAFINIL
     Indication: Narcolepsy
     Dosage: UNK, QD
     Route: 048
  25. ARMODAFINIL [Concomitant]
     Active Substance: ARMODAFINIL
     Indication: Cataplexy
  26. BROMELAINS [Concomitant]
     Active Substance: BROMELAINS
     Indication: Product used for unknown indication
  27. SUPER OMEGA [Concomitant]
     Indication: Product used for unknown indication

REACTIONS (2)
  - Surgery [Unknown]
  - Myalgia [Unknown]
